FAERS Safety Report 10224160 (Version 1)
Quarter: 2014Q2

REPORT INFORMATION
  Report Type: Spontaneous
  Country: US (occurrence: US)
  Receive Date: 20140609
  Receipt Date: 20140609
  Transmission Date: 20141212
  Serious: No
  Sender: FDA-Public Use
  Company Number: US-PFIZER INC-2014152661

PATIENT
  Age: 61 Year
  Sex: Female

DRUGS (13)
  1. LYRICA [Suspect]
     Indication: NEURALGIA
     Dosage: 300 MG, BID
  2. LOTENSIN [Concomitant]
     Indication: HYPERTENSION
     Dosage: 40 MG, DAILY
  3. ASA [Concomitant]
     Indication: CARDIAC DISORDER
     Dosage: 81 MG, DAILY
  4. METFORMIN [Concomitant]
     Indication: DIABETES MELLITUS
     Dosage: 500 MG, BID
  5. DITROPAN [Concomitant]
     Indication: BLADDER DISORDER
     Dosage: 5 MG, TID
  6. LIPITOR [Concomitant]
     Indication: BLOOD CHOLESTEROL
     Dosage: 80 MG, HS
  7. AMBIEN [Concomitant]
     Indication: SLEEP DISORDER
     Dosage: 10 MG, H.S
  8. ZANAFLEX [Concomitant]
     Indication: MUSCLE SPASMS
     Dosage: 4 MG, HS
  9. LORTAB [Concomitant]
     Indication: PAIN
     Dosage: 10/5 Q4-6H
  10. TYLENOL [Concomitant]
     Indication: ARTHRITIS
     Dosage: 650 MG, TID
  11. MOVE FREE ADVANCE [Concomitant]
     Indication: ARTHROPATHY
     Dosage: UNK, TID
  12. ZOFRAN [Concomitant]
     Indication: NAUSEA
     Dosage: 4 MG, PRN
  13. MOTRIN [Concomitant]
     Dosage: 500 MG, QID

REACTIONS (3)
  - Therapeutic response changed [Unknown]
  - Crying [Unknown]
  - Pain [Unknown]
